FAERS Safety Report 10931349 (Version 3)
Quarter: 2017Q2

REPORT INFORMATION
  Report Type: Report from Study
  Country: CO (occurrence: CO)
  Receive Date: 20150319
  Receipt Date: 20170630
  Transmission Date: 20170829
  Serious: Yes (Hospitalization, Other)
  Sender: FDA-Public Use
  Company Number: PHHY2015CO022391

PATIENT
  Age: 45 Year
  Sex: Female
  Weight: 61 kg

DRUGS (8)
  1. PREGABALIN. [Concomitant]
     Active Substance: PREGABALIN
     Indication: FIBROMYALGIA
     Dosage: 300 MG, BID
     Route: 065
     Dates: start: 2006
  2. GILENYA [Suspect]
     Active Substance: FINGOLIMOD HYDROCHLORIDE
     Indication: MULTIPLE SCLEROSIS
     Dosage: 0.5 MG, QD (ONCE DAILY AT THE SAME HOUR)
     Route: 048
     Dates: start: 20140731, end: 201412
  3. FLUOXETINE [Concomitant]
     Active Substance: FLUOXETINE HYDROCHLORIDE
     Indication: ANXIETY
  4. FLUOXETINE [Concomitant]
     Active Substance: FLUOXETINE HYDROCHLORIDE
     Indication: MAJOR DEPRESSION
     Dosage: UNK
     Route: 065
     Dates: start: 2008, end: 2010
  5. DULOXETINE. [Concomitant]
     Active Substance: DULOXETINE
     Indication: ANXIETY
  6. GILENYA [Suspect]
     Active Substance: FINGOLIMOD HYDROCHLORIDE
     Dosage: UNK DF, QD (ONCE DAILY AT THE SAME HOUR)
     Route: 048
     Dates: start: 20150223, end: 20170601
  7. BUPRENORPHINE. [Concomitant]
     Active Substance: BUPRENORPHINE
     Indication: FIBROMYALGIA
     Dosage: 1 DF (1 PATCH), Q72H
     Route: 065
     Dates: start: 2006
  8. DULOXETINE. [Concomitant]
     Active Substance: DULOXETINE
     Indication: MAJOR DEPRESSION
     Dosage: 30 MG, BID
     Route: 065
     Dates: start: 2010

REACTIONS (12)
  - Dysuria [Unknown]
  - Multiple sclerosis relapse [Unknown]
  - Memory impairment [Unknown]
  - Decreased immune responsiveness [Unknown]
  - Multiple sclerosis relapse [Recovered/Resolved]
  - Vomiting [Unknown]
  - Rash [Unknown]
  - Pyrexia [Unknown]
  - Varicella zoster virus infection [Recovered/Resolved]
  - Kidney infection [Recovered/Resolved]
  - Asthenia [Unknown]
  - Pain [Unknown]

NARRATIVE: CASE EVENT DATE: 20141207
